FAERS Safety Report 25341878 (Version 1)
Quarter: 2025Q2

REPORT INFORMATION
  Report Type: Spontaneous
  Country: US (occurrence: None)
  Receive Date: 20250521
  Receipt Date: 20250521
  Transmission Date: 20250717
  Serious: Yes (Other)
  Sender: FDA-CTU
  Company Number: None

PATIENT
  Age: 29 Year
  Sex: Female
  Weight: 46.8 kg

DRUGS (2)
  1. HERBALS\MITRAGYNINE [Suspect]
     Active Substance: HERBALS\MITRAGYNINE
     Indication: Stress
     Route: 048
     Dates: start: 20250517, end: 20250517
  2. WOMEN^S ONE-A-DAY VITAMINS [Concomitant]

REACTIONS (10)
  - Fatigue [None]
  - Sluggishness [None]
  - Feeling abnormal [None]
  - Heart rate decreased [None]
  - Motor dysfunction [None]
  - Nausea [None]
  - Hypoaesthesia oral [None]
  - Tongue pruritus [None]
  - Headache [None]
  - Bedridden [None]

NARRATIVE: CASE EVENT DATE: 20250517
